FAERS Safety Report 5407533-X (Version None)
Quarter: 2007Q3

REPORT INFORMATION
  Report Type: 
  Country: None (occurrence: None)
  Receive Date: 20070807
  Receipt Date: 20070726
  Transmission Date: 20080115
  Serious: Yes (Other)
  Sender: FDA-Public Use
  Company Number: US-PFIZER INC-2007063266

PATIENT
  Sex: Female
  Weight: 71 kg

DRUGS (12)
  1. LYRICA [Suspect]
     Indication: NEUROPATHY
     Route: 048
  2. NEURONTIN [Suspect]
  3. PREDNISONE TAB [Suspect]
     Indication: CHRONIC OBSTRUCTIVE PULMONARY DISEASE
     Route: 048
  4. PREDNISONE TAB [Suspect]
     Indication: LUNG NEOPLASM MALIGNANT
  5. CLONAZEPAM [Suspect]
     Indication: DIZZINESS
  6. CLONAZEPAM [Suspect]
     Indication: VERTIGO
  7. ALL OTHER THERAPEUTIC PRODUCTS [Suspect]
  8. PHENERGAN ^AVENTIS PHARMA^ [Suspect]
     Indication: NAUSEA
  9. REGLAN [Concomitant]
  10. COMPAZINE [Concomitant]
  11. SINGULAIR [Concomitant]
  12. ZOFRAN [Concomitant]

REACTIONS (13)
  - ACTIVITIES OF DAILY LIVING IMPAIRED [None]
  - CATARACT [None]
  - CHRONIC OBSTRUCTIVE PULMONARY DISEASE [None]
  - DIABETES MELLITUS [None]
  - DIZZINESS [None]
  - HYPERTENSION [None]
  - LUNG NEOPLASM MALIGNANT [None]
  - MONOCLONAL IMMUNOGLOBULIN PRESENT [None]
  - MULTIPLE SCLEROSIS [None]
  - NERVE INJURY [None]
  - THYROID DISORDER [None]
  - VERTIGO [None]
  - WEIGHT INCREASED [None]
